FAERS Safety Report 15108763 (Version 2)
Quarter: 2018Q3

REPORT INFORMATION
  Report Type: Spontaneous
  Country: US (occurrence: US)
  Receive Date: 20180705
  Receipt Date: 20180731
  Transmission Date: 20181010
  Serious: Yes (Hospitalization, Other)
  Sender: FDA-Public Use
  Company Number: US-APOTEX-2018AP016557

PATIENT
  Sex: Male

DRUGS (1)
  1. FLUTICASONE PROPIONATE NASAL SPRAY USP [Suspect]
     Active Substance: FLUTICASONE PROPIONATE
     Indication: HYPERSENSITIVITY
     Dosage: UNK
     Route: 045

REACTIONS (6)
  - Epistaxis [Recovered/Resolved]
  - Nasal discomfort [Unknown]
  - Headache [Unknown]
  - Blindness transient [Recovered/Resolved]
  - Muscle tightness [Unknown]
  - Eye haemorrhage [Unknown]
